FAERS Safety Report 13530408 (Version 1)
Quarter: 2017Q2

REPORT INFORMATION
  Report Type: Spontaneous
  Country: US (occurrence: US)
  Receive Date: 20170509
  Receipt Date: 20170509
  Transmission Date: 20170830
  Serious: Yes (Hospitalization)
  Sender: FDA-Public Use
  Company Number: None

PATIENT
  Age: 57 Year
  Sex: Male
  Weight: 111.6 kg

DRUGS (2)
  1. SIMVASTATIN. [Suspect]
     Active Substance: SIMVASTATIN
     Indication: DIABETES MELLITUS
     Route: 048
     Dates: start: 20170111, end: 20170113
  2. SIMVASTATIN. [Suspect]
     Active Substance: SIMVASTATIN
     Indication: HYPERLIPIDAEMIA
     Route: 048
     Dates: start: 20170111, end: 20170113

REACTIONS (7)
  - Pain in extremity [None]
  - Chest pain [None]
  - Hepatic enzyme increased [None]
  - Myalgia [None]
  - Muscle spasms [None]
  - Therapy cessation [None]
  - Acute kidney injury [None]

NARRATIVE: CASE EVENT DATE: 20170111
